FAERS Safety Report 9506137 (Version 1)
Quarter: 2013Q1

REPORT INFORMATION
  Report Type: Spontaneous
  Country: US (occurrence: None)
  Receive Date: 20130305
  Receipt Date: 20130305
  Transmission Date: 20140127
  Serious: Yes (Other)
  Sender: FDA-Public Use
  Company Number: 163-21880-11060712

PATIENT
  Age: 82 Year
  Sex: Female
  Weight: 72.12 kg

DRUGS (15)
  1. REVLIMID (LENALIDOMIDE) (25 MILLIGRAM, CAPSULES) [Suspect]
     Indication: PLASMA CELL MYELOMA
     Dosage: 25 MG, CAPSULE, 21 IN 28 D, PO
     Dates: start: 20090414, end: 200904
  2. DEXAMETHASONE [Concomitant]
  3. ASPIRIN (ACETYLSALICYLIC ACID) [Concomitant]
  4. CALCIUM CITRATE-VITAMIN D (CALCIUM CITRATE W/COLECALCIFEROL) [Concomitant]
  5. CHOLECALCIFEROL (COLECALCIFEROL) [Concomitant]
  6. GABAPENTIN [Concomitant]
  7. LORAZEPAM [Concomitant]
  8. MULTIPLE VITAMIN (MULTIVITAMINS) [Concomitant]
  9. RANITIDINE [Concomitant]
  10. SELENIUM SULFIDE [Concomitant]
  11. VITAMIN B-12 (CYANOCOBALAMIN) [Concomitant]
  12. ZOLEDRONIC ACID [Concomitant]
  13. OMEPRAZOLE [Concomitant]
  14. BENADRYL (DIPHENHYDRAMINE HYDROCHLORIDE) [Concomitant]
  15. MELATONIN [Concomitant]

REACTIONS (7)
  - Thrombophlebitis superficial [None]
  - Deep vein thrombosis [None]
  - Local swelling [None]
  - Insomnia [None]
  - Constipation [None]
  - Leukopenia [None]
  - Anaemia [None]
